FAERS Safety Report 22112051 (Version 3)
Quarter: 2023Q2

REPORT INFORMATION
  Report Type: Spontaneous
  Country: CA (occurrence: CA)
  Receive Date: 20230318
  Receipt Date: 20230509
  Transmission Date: 20230721
  Serious: Yes (Other)
  Sender: FDA-Public Use
  Company Number: CA-CELLTRION INC.-2023CA003855

PATIENT

DRUGS (6)
  1. INFLECTRA [Suspect]
     Active Substance: INFLIXIMAB-DYYB
     Indication: Crohn^s disease
     Dosage: 10 MG/KG, EVERY 4 W, W 6. H START (W0,2).ROUNDED TO NEAREST VIAL.
     Route: 042
  2. INFLECTRA [Suspect]
     Active Substance: INFLIXIMAB-DYYB
     Dosage: 1 DF,HOSPITAL START (W0,2). UNK
     Route: 042
     Dates: start: 20230126, end: 20230209
  3. INFLECTRA [Suspect]
     Active Substance: INFLIXIMAB-DYYB
     Dosage: 1 DF,HL START (WK0,2). UNK
     Route: 042
     Dates: start: 20230209
  4. INFLECTRA [Suspect]
     Active Substance: INFLIXIMAB-DYYB
     Dosage: 400 MG (11.11 MG/KG), (10 MG/KG TO NEAREST VIAL W 6 THEN EVERY 4 W, (W 0, W 2, W 6 THEN Q 4 W)
     Route: 042
     Dates: start: 20230309
  5. INFLECTRA [Suspect]
     Active Substance: INFLIXIMAB-DYYB
     Dosage: 400 MG (11.11 MG/KG), (10 MG/KG TO NEAREST VIAL W 6 THEN EVERY 4 W, (W 0, W 2, W 6 THEN Q 4 W)
     Route: 042
     Dates: start: 20230406
  6. MESALAMINE [Concomitant]
     Active Substance: MESALAMINE
     Dosage: UNK

REACTIONS (6)
  - Haematochezia [Not Recovered/Not Resolved]
  - Off label use [Unknown]
  - Off label use [Unknown]
  - Off label use [Unknown]
  - Intentional product use issue [Unknown]
  - Condition aggravated [Unknown]
